FAERS Safety Report 4873052-2 (Version None)
Quarter: 2006Q1

REPORT INFORMATION
  Report Type: 
  Country: None (occurrence: None)
  Receive Date: 20060105
  Receipt Date: 20051130
  Transmission Date: 20060701
  Serious: Yes (Other)
  Sender: FDA-Public Use
  Company Number: GXKR2005BR01884

PATIENT
  Age: 37 Year
  Sex: Female
  Weight: 68 kg

DRUGS (5)
  1. AMOXICILLIN TRIHYDRATE [Suspect]
     Indication: ENDODONTIC PROCEDURE
     Dosage: 500 MG, TID
     Route: 048
  2. DICLOFENAC [Concomitant]
     Dosage: 50 MG, TID
     Route: 048
  3. PROPRANOLOL [Concomitant]
     Indication: HYPERTENSION
     Dosage: 2 TABLETS, QD
     Route: 048
  4. DIAZEPAM [Concomitant]
     Indication: ANXIETY
     Dosage: 2 TABLETS, QD
     Route: 048
  5. METHERGINE [Suspect]

REACTIONS (4)
  - ABDOMINAL PAIN [None]
  - ABORTION [None]
  - DRUG EXPOSURE DURING PREGNANCY [None]
  - UTERINE HAEMORRHAGE [None]
